FAERS Safety Report 17216812 (Version 1)
Quarter: 2019Q4

REPORT INFORMATION
  Report Type: Spontaneous
  Country: FR (occurrence: FR)
  Receive Date: 20191231
  Receipt Date: 20191231
  Transmission Date: 20200122
  Serious: Yes (Hospitalization)
  Sender: FDA-Public Use
  Company Number: FR-ROCHE-2507275

PATIENT
  Age: 77 Year
  Sex: Female
  Weight: 33 kg

DRUGS (1)
  1. XELODA [Suspect]
     Active Substance: CAPECITABINE
     Indication: BREAST CANCER
     Route: 048
     Dates: start: 201712, end: 20190508

REACTIONS (2)
  - Pyelonephritis [Recovering/Resolving]
  - Intervertebral discitis [Recovering/Resolving]

NARRATIVE: CASE EVENT DATE: 20190508
